FAERS Safety Report 11895114 (Version 12)
Quarter: 2017Q2

REPORT INFORMATION
  Report Type: Spontaneous
  Country: US (occurrence: US)
  Receive Date: 20160107
  Receipt Date: 20170510
  Transmission Date: 20170829
  Serious: Yes (Hospitalization, Other)
  Sender: FDA-Public Use
  Company Number: US-PFIZER INC-2015439091

PATIENT
  Age: 45 Year
  Sex: Female
  Weight: 79 kg

DRUGS (12)
  1. IBRANCE [Suspect]
     Active Substance: PALBOCICLIB
     Dosage: 125 MG, CYCLIC (DAY 1-21 Q 28 DAYS)
     Route: 048
     Dates: start: 20151123
  2. ZOMETA [Concomitant]
     Active Substance: ZOLEDRONIC ACID
     Dosage: UNK
  3. IBRANCE [Suspect]
     Active Substance: PALBOCICLIB
     Indication: BREAST CANCER METASTATIC
     Dosage: 125 MG, CYCLIC (DAY 1-21 Q 28 DAYS)
     Route: 048
     Dates: start: 20151123
  4. IBRANCE [Suspect]
     Active Substance: PALBOCICLIB
     Dosage: 125 MG, CYCLIC (DAY 1-21 Q 28 DAYS)
     Route: 048
     Dates: start: 20151123
  5. IBRANCE [Suspect]
     Active Substance: PALBOCICLIB
     Dosage: 125 MG, CYCLIC (DAYS 1-21 Q28 DAYS)
     Route: 048
     Dates: start: 20151123
  6. IBRANCE [Suspect]
     Active Substance: PALBOCICLIB
     Dosage: 125 MG, CYCLIC (D1-21 Q28D)
     Route: 048
     Dates: start: 20151123
  7. IBRANCE [Suspect]
     Active Substance: PALBOCICLIB
     Dosage: 125 MG, CYCLIC (D1-D21 Q28D)
     Route: 048
     Dates: start: 20151123
  8. IBRANCE [Suspect]
     Active Substance: PALBOCICLIB
     Dosage: 125 MG, CYCLIC (DAY 1-21 Q 28 DAYS)
     Route: 048
     Dates: start: 20151123
  9. IBRANCE [Suspect]
     Active Substance: PALBOCICLIB
     Dosage: 125 MG, CYCLIC (DAY 1-21Q 28 DAYS)
     Route: 048
     Dates: start: 20151123
  10. IBRANCE [Suspect]
     Active Substance: PALBOCICLIB
     Dosage: 125 MG, CYCLIC  (DAY 1-21 Q 28 DAYS)
     Route: 048
     Dates: start: 20151123
  11. IBRANCE [Suspect]
     Active Substance: PALBOCICLIB
     Dosage: 125 MG, CYCLIC (D1-21 Q 28 DAYS)
     Route: 048
     Dates: start: 20151123
  12. IBRANCE [Suspect]
     Active Substance: PALBOCICLIB
     Dosage: 125 MG, CYCLIC (D1-21 Q 28 DAYS)
     Route: 048
     Dates: start: 20151123

REACTIONS (33)
  - Thrombosis [Unknown]
  - Deep vein thrombosis [Unknown]
  - Viral upper respiratory tract infection [Unknown]
  - Sinus congestion [Unknown]
  - White blood cell count decreased [Unknown]
  - Sepsis [Unknown]
  - Arthralgia [Unknown]
  - Night sweats [Unknown]
  - Pyrexia [Unknown]
  - Memory impairment [Unknown]
  - Bone pain [Not Recovered/Not Resolved]
  - Oropharyngeal pain [Unknown]
  - Hot flush [Unknown]
  - Rash [Unknown]
  - Disturbance in attention [Unknown]
  - Breath sounds abnormal [Unknown]
  - Abdominal pain upper [Unknown]
  - Sputum discoloured [Unknown]
  - Epistaxis [Unknown]
  - Musculoskeletal chest pain [Unknown]
  - Pulmonary embolism [Unknown]
  - Psoriasis [Unknown]
  - Pain in extremity [Unknown]
  - Red blood cell count decreased [Unknown]
  - Onycholysis [Unknown]
  - Productive cough [Unknown]
  - Pruritus [Unknown]
  - Nail discolouration [Unknown]
  - Herpes zoster [Unknown]
  - Bronchitis [Unknown]
  - Myalgia [Unknown]
  - Chills [Unknown]
  - Pain in extremity [Unknown]

NARRATIVE: CASE EVENT DATE: 20160219
